FAERS Safety Report 26160826 (Version 1)
Quarter: 2025Q4

REPORT INFORMATION
  Report Type: Spontaneous
  Country: EU (occurrence: EU)
  Receive Date: 20251216
  Receipt Date: 20251216
  Transmission Date: 20260118
  Serious: Yes (Death)
  Sender: IMMUNOCORE
  Company Number: EU-Medison-001791

PATIENT

DRUGS (1)
  1. TEBENTAFUSP [Suspect]
     Active Substance: TEBENTAFUSP
     Indication: Metastatic ocular melanoma
     Dosage: 68 MG INFUSION ONCE EVERY WEEK

REACTIONS (1)
  - Cytokine release syndrome [Fatal]
